FAERS Safety Report 9467242 (Version 2)
Quarter: 2013Q3

REPORT INFORMATION
  Report Type: Report from Study
  Country: MX (occurrence: MX)
  Receive Date: 20130821
  Receipt Date: 20130821
  Transmission Date: 20140515
  Serious: Yes (Other)
  Sender: FDA-Public Use
  Company Number: MX-BIOGENIDEC-2011BI021551

PATIENT
  Age: 29 Year
  Sex: Female
  Weight: 53 kg

DRUGS (3)
  1. BG00012 [Suspect]
     Indication: MULTIPLE SCLEROSIS
     Route: 048
     Dates: start: 20110223, end: 20110314
  2. DROSPIRENONE [Concomitant]
     Indication: CONTRACEPTION
     Route: 048
     Dates: start: 200903
  3. ETHINYLESTRADIOL [Concomitant]
     Indication: CONTRACEPTION
     Route: 048
     Dates: start: 200803

REACTIONS (1)
  - Chronic hepatitis [Recovered/Resolved]
